FAERS Safety Report 23328076 (Version 1)
Quarter: 2023Q4

REPORT INFORMATION
  Report Type: Spontaneous
  Country: DE (occurrence: DE)
  Receive Date: 20231221
  Receipt Date: 20231221
  Transmission Date: 20240110
  Serious: Yes (Other)
  Sender: FDA-Public Use
  Company Number: DE-009507513-2312DEU006893

PATIENT
  Age: 72 Year
  Sex: Female

DRUGS (1)
  1. PEMBROLIZUMAB [Suspect]
     Active Substance: PEMBROLIZUMAB
     Indication: Malignant melanoma
     Dosage: 1ST DOSE

REACTIONS (3)
  - Malignant neoplasm progression [Recovered/Resolved]
  - Tumour pseudoprogression [Recovered/Resolved]
  - Bone lesion [Not Recovered/Not Resolved]
